FAERS Safety Report 21890951 (Version 1)
Quarter: 2023Q1

REPORT INFORMATION
  Report Type: Spontaneous
  Country: NL (occurrence: NL)
  Receive Date: 20230120
  Receipt Date: 20230120
  Transmission Date: 20230418
  Serious: Yes (Life-Threatening, Hospitalization)
  Sender: FDA-Public Use
  Company Number: None

PATIENT
  Sex: Female
  Weight: 81.5 kg

DRUGS (4)
  1. OMEPRAZOLE [Suspect]
     Active Substance: OMEPRAZOLE
     Indication: Barrett^s oesophagus
     Dosage: 40 MILLIGRAM DAILY;  OMEPRAZOLE CAPSULE MSR 20MG / BRAND NAME NOT SPECIFIED, 2 TIMES A DAY
     Route: 065
     Dates: start: 20200210, end: 20221127
  2. HYDROCHLOROTHIAZIDE [Concomitant]
     Active Substance: HYDROCHLOROTHIAZIDE
     Indication: Product used for unknown indication
     Dosage: 25 MG (MILLIGRAM), BRAND NAME NOT SPECIFIED
  3. DENOSUMAB [Concomitant]
     Active Substance: DENOSUMAB
     Indication: Product used for unknown indication
     Dosage: 60 MG/ML (MILLIGRAM PER MILLILITER), DENOSUMAB INJVLST 60MG/ML / BRAND NAME NOT SPECIFIED
  4. CHOLECALCIFEROL [Concomitant]
     Active Substance: CHOLECALCIFEROL
     Indication: Product used for unknown indication
     Dosage: 800 UNITS, STRENGTH : 800IE / BRAND NAME NOT SPECIFIED

REACTIONS (3)
  - Hypocalcaemia [Recovered/Resolved]
  - Hypokalaemia [Recovered/Resolved]
  - Hypomagnesaemia [Recovered/Resolved]
